FAERS Safety Report 9022167 (Version 1)
Quarter: 2013Q1

REPORT INFORMATION
  Report Type: Spontaneous
  Country: GR (occurrence: GR)
  Receive Date: 20130118
  Receipt Date: 20130118
  Transmission Date: 20140127
  Serious: Yes (Hospitalization)
  Sender: FDA-Public Use
  Company Number: GR-ASTRAZENECA-2013SE02501

PATIENT
  Age: 60 Year
  Sex: Male

DRUGS (4)
  1. BRILIQUE [Suspect]
     Indication: ACUTE CORONARY SYNDROME
     Route: 048
     Dates: start: 201207
  2. CRESTOR [Concomitant]
     Indication: ARTERIOSCLEROSIS
     Route: 048
     Dates: start: 201207
  3. SALOSPIR [Concomitant]
     Indication: ACUTE CORONARY SYNDROME
     Route: 048
     Dates: start: 201207
  4. LOPRESOR [Concomitant]
     Indication: HYPERTENSION
     Dosage: 1/4 OF A TABLET OF 100MG THREE TIMES A DAY
     Route: 048
     Dates: start: 201207

REACTIONS (3)
  - Haematocrit decreased [Not Recovered/Not Resolved]
  - Red blood cell count decreased [Not Recovered/Not Resolved]
  - Leukopenia [Not Recovered/Not Resolved]
